FAERS Safety Report 6961377-6 (Version None)
Quarter: 2010Q3

REPORT INFORMATION
  Report Type: 
  Country: None (occurrence: None)
  Receive Date: 20100901
  Receipt Date: 20100730
  Transmission Date: 20110219
  Serious: Yes (Hospitalization, Other)
  Sender: FDA-Public Use
  Company Number: PHEH2007US11535

PATIENT
  Sex: Female
  Weight: 36.281 kg

DRUGS (46)
  1. AREDIA [Suspect]
     Dosage: UNK
     Dates: end: 20050801
  2. ARESTIN [Concomitant]
     Dosage: UNK
     Dates: end: 20040101
  3. SEPTOCAINE [Concomitant]
     Dosage: UNK
     Dates: start: 20040517
  4. MIACALCIN [Concomitant]
     Dosage: UNK
  5. NORVASC [Concomitant]
     Dosage: 5 MG / QD
  6. METOPROLOL TARTRATE [Concomitant]
     Dosage: 100 MG / QD
  7. ANUSOL                                  /NET/ [Concomitant]
     Dosage: UNK
  8. ZOLOFT [Concomitant]
     Indication: DEPRESSION
     Dosage: 50 MG / QD
  9. PROTONIX [Concomitant]
     Dosage: 40 MG / QD
  10. QUESTRAN [Concomitant]
     Dosage: 1/2 PACKET/ BID
  11. LOPRESSOR [Concomitant]
     Dosage: UNK
  12. EPOGEN [Concomitant]
     Dosage: UNK
  13. TEVETEN [Concomitant]
     Dosage: 600 MG / QD
  14. PREDNISONE [Concomitant]
     Dosage: UNK
  15. OXYGEN THERAPY [Concomitant]
     Dosage: 4 LITERS
  16. VIOXX [Concomitant]
     Dosage: UNK
  17. SANDOSTATIN LAR [Concomitant]
     Dosage: 20 MG/ Q4
  18. SANDOSTATIN LAR [Concomitant]
     Dosage: 30 MG / Q4
  19. ADVAIR DISKUS 100/50 [Concomitant]
     Indication: EMPHYSEMA
     Dosage: 100 MG / QD
  20. ULTRACET [Concomitant]
     Indication: PAIN MANAGEMENT
     Dosage: UNK
  21. LOTREL [Concomitant]
     Indication: HYPERTENSION
     Dosage: UNK
  22. HYDREA [Concomitant]
     Dosage: 500 MG / TWICE A DAY
  23. PROPOXYPHENE NAPSYLATE W/ ACETAMINOPHEN [Concomitant]
     Indication: PAIN
     Dosage: UNK / PRN
  24. HYDROXYZINE [Concomitant]
  25. FORTICAL /USA/ [Concomitant]
  26. DIPHENOXYLATE HCL AND ATROPINE SULFATE [Concomitant]
  27. FAMOTIDINE [Concomitant]
  28. KETOROLAC [Concomitant]
  29. ONDANSETRON [Concomitant]
  30. ESOMEPRAZOLE MAGNESIUM [Concomitant]
  31. ACETAMINOPHEN [Concomitant]
  32. LOPERAMIDE [Concomitant]
  33. TIGECYCLINE [Concomitant]
  34. APRESOLINE [Concomitant]
  35. GLYCOPYRROLATE [Concomitant]
  36. MEPERIDINE HCL [Concomitant]
  37. LEVALBUTEROL HYDROCHLORIDE [Concomitant]
  38. HYDROXYUREA [Concomitant]
  39. LISINOPRIL [Concomitant]
  40. MULTI-VITAMINS [Concomitant]
  41. SERTRALINE HYDROCHLORIDE [Concomitant]
  42. FOLIC ACID [Concomitant]
  43. NIFEDIPINE [Concomitant]
  44. ACIPHEX [Concomitant]
  45. QUESTRAN [Concomitant]
  46. HORMONES NOS [Concomitant]
     Dosage: UNK, UNK

REACTIONS (100)
  - ABSCESS DRAINAGE [None]
  - ABSCESS ORAL [None]
  - ADENOMA BENIGN [None]
  - ANAEMIA [None]
  - ANHEDONIA [None]
  - ANXIETY [None]
  - ARTERIOSCLEROSIS [None]
  - ARTHRALGIA [None]
  - ATELECTASIS [None]
  - BASAL CELL CARCINOMA [None]
  - BILIARY DILATATION [None]
  - BLINDNESS TRANSIENT [None]
  - BONE DISORDER [None]
  - BONE OPERATION [None]
  - BRONCHITIS [None]
  - CAECUM OPERATION [None]
  - CARDIOMEGALY [None]
  - CHEST PAIN [None]
  - CHOLECYSTECTOMY [None]
  - CHOLECYSTITIS [None]
  - CHOLELITHIASIS [None]
  - CHOROIDAL DETACHMENT [None]
  - CHRONIC OBSTRUCTIVE PULMONARY DISEASE [None]
  - COMPRESSION FRACTURE [None]
  - CONTUSION [None]
  - CORONARY ARTERY DISEASE [None]
  - DEHYDRATION [None]
  - DENTAL PROSTHESIS PLACEMENT [None]
  - DEPRESSION [None]
  - DIARRHOEA [None]
  - DIPLOPIA [None]
  - DIVERTICULUM OESOPHAGEAL [None]
  - DYSPHAGIA [None]
  - ECTROPION [None]
  - EMPHYSEMA [None]
  - ENDODONTIC PROCEDURE [None]
  - ERB'S PALSY [None]
  - EXTRASYSTOLES [None]
  - EYE INJURY [None]
  - FACIAL BONES FRACTURE [None]
  - FACIAL PAIN [None]
  - FALL [None]
  - FATIGUE [None]
  - FEELING ABNORMAL [None]
  - GAIT DISTURBANCE [None]
  - GASTRINOMA [None]
  - GASTROINTESTINAL HAEMORRHAGE [None]
  - GLAUCOMA [None]
  - HEAD INJURY [None]
  - HIATUS HERNIA [None]
  - HYPERTENSION [None]
  - HYPOTONY OF EYE [None]
  - INJURY [None]
  - INTRAOCULAR LENS IMPLANT [None]
  - KERATITIS [None]
  - KERATOCONJUNCTIVITIS SICCA [None]
  - LIVER FUNCTION TEST ABNORMAL [None]
  - MALNUTRITION [None]
  - MENTAL DISORDER [None]
  - MUSCULAR WEAKNESS [None]
  - MYELOPROLIFERATIVE DISORDER [None]
  - MYOPIA [None]
  - NEPHROLITHIASIS [None]
  - OEDEMA PERIPHERAL [None]
  - OESOPHAGEAL FOOD IMPACTION [None]
  - OESOPHAGEAL OBSTRUCTION [None]
  - OESOPHAGEAL STENOSIS [None]
  - OPEN REDUCTION OF FRACTURE [None]
  - ORAL MUCOSAL HYPERTROPHY [None]
  - OSTEOARTHRITIS [None]
  - OSTEOMYELITIS [None]
  - OSTEONECROSIS OF JAW [None]
  - OSTEOPENIA [None]
  - OSTEOPOROSIS [None]
  - PAIN [None]
  - PANCREATITIS ACUTE [None]
  - PERIARTHRITIS [None]
  - PERIODONTAL DISEASE [None]
  - PLEURAL EFFUSION [None]
  - PNEUMONIA [None]
  - PULMONARY MASS [None]
  - RECTAL PROLAPSE [None]
  - RECTAL PROLAPSE REPAIR [None]
  - RENAL FAILURE [None]
  - RIB FRACTURE [None]
  - ROTATOR CUFF SYNDROME [None]
  - SCOLIOSIS [None]
  - SKIN NEOPLASM EXCISION [None]
  - SPINAL COMPRESSION FRACTURE [None]
  - TENDERNESS [None]
  - TENDONITIS [None]
  - THROMBOCYTOSIS [None]
  - TOOTH EXTRACTION [None]
  - ULCER HAEMORRHAGE [None]
  - VENTRICULAR TACHYCARDIA [None]
  - VISION BLURRED [None]
  - VITREOUS DETACHMENT [None]
  - VITREOUS FLOATERS [None]
  - VITREOUS HAEMORRHAGE [None]
  - WEIGHT DECREASED [None]
